FAERS Safety Report 15478573 (Version 2)
Quarter: 2018Q4

REPORT INFORMATION
  Report Type: Spontaneous
  Country: US (occurrence: US)
  Receive Date: 20181009
  Receipt Date: 20181116
  Transmission Date: 20190205
  Serious: Yes (Other)
  Sender: FDA-Public Use
  Company Number: US-BAYER-2018-185312

PATIENT
  Sex: Female

DRUGS (1)
  1. MIRENA [Suspect]
     Active Substance: LEVONORGESTREL
     Dosage: 20 MG/24HR, CONT
     Route: 015
     Dates: start: 20170607, end: 20180823

REACTIONS (2)
  - Pelvic pain [None]
  - Ovarian cyst [None]
